FAERS Safety Report 21404055 (Version 1)
Quarter: 2022Q4

REPORT INFORMATION
  Report Type: Spontaneous
  Country: BR (occurrence: BR)
  Receive Date: 20221003
  Receipt Date: 20221003
  Transmission Date: 20230113
  Serious: Yes (Other)
  Sender: FDA-Public Use
  Company Number: BR-BAXTER-2022BAX020845

PATIENT
  Age: 40 Year
  Sex: Female

DRUGS (8)
  1. PROPOFOL [Suspect]
     Active Substance: PROPOFOL
     Indication: Sedative therapy
     Dosage: 150 MG (40 MG EVERY 5 MINUTES UNTIL THE END OF THE EXAM)
     Route: 042
     Dates: start: 20220906, end: 20220906
  2. PROPOFOL [Suspect]
     Active Substance: PROPOFOL
     Indication: Endoscopy
  3. SODIUM CHLORIDE [Suspect]
     Active Substance: SODIUM CHLORIDE
     Indication: Catheter management
     Dosage: 250 ML (DILUTED IN 2 MG REMIFENTANIL)
     Route: 042
     Dates: start: 20220906, end: 20220906
  4. SODIUM CHLORIDE [Suspect]
     Active Substance: SODIUM CHLORIDE
     Indication: Medication dilution
     Dosage: 100 ML
     Route: 042
     Dates: start: 20220906, end: 20220906
  5. LIDOCAINE HYDROCHLORIDE [Suspect]
     Active Substance: LIDOCAINE HYDROCHLORIDE
     Indication: Sedative therapy
     Dosage: 60 MG, WITHOUT VASOCONSTRICTOR
     Route: 042
     Dates: start: 20220906, end: 20220906
  6. LIDOCAINE HYDROCHLORIDE [Suspect]
     Active Substance: LIDOCAINE HYDROCHLORIDE
     Indication: Adjuvant therapy
  7. REMIFENTANIL [Suspect]
     Active Substance: REMIFENTANIL
     Indication: Sedative therapy
     Dosage: 16 MCG (2 MG DILUTED IN 250 ML OF SALINE SOLUTION) IN TITRATED DOSES
     Route: 042
     Dates: start: 20220906, end: 20220906
  8. REMIFENTANIL [Suspect]
     Active Substance: REMIFENTANIL
     Indication: Adjuvant therapy

REACTIONS (5)
  - Syncope [Recovered/Resolved]
  - Dyspnoea [Recovered/Resolved]
  - Headache [Recovered/Resolved]
  - Chills [Recovered/Resolved]
  - Hypotension [Recovered/Resolved]

NARRATIVE: CASE EVENT DATE: 20220906
